FAERS Safety Report 16647479 (Version 1)
Quarter: 2019Q3

REPORT INFORMATION
  Report Type: Spontaneous
  Country: US (occurrence: US)
  Receive Date: 20190617
  Receipt Date: 20190617
  Transmission Date: 20191004
  Serious: No
  Sender: FDA-Public Use
  Company Number: None

PATIENT

DRUGS (2)
  1. HEPARIN [Suspect]
     Active Substance: HEPARIN SODIUM
  2. VASOPRESSIN INJECTION [Suspect]
     Active Substance: VASOPRESSIN
     Dosage: ?          OTHER STRENGTH:20/1 UNITS/ML;?

REACTIONS (3)
  - Product label confusion [None]
  - Intercepted product dispensing error [None]
  - Product packaging confusion [None]
